FAERS Safety Report 16381333 (Version 1)
Quarter: 2019Q2

REPORT INFORMATION
  Report Type: Spontaneous
  Country: FR (occurrence: FR)
  Receive Date: 20190603
  Receipt Date: 20190603
  Transmission Date: 20190711
  Serious: Yes (Other)
  Sender: FDA-Public Use
  Company Number: FR-BRISTOL-MYERS SQUIBB COMPANY-BMS-2019-050634

PATIENT
  Sex: Female
  Weight: 58 kg

DRUGS (1)
  1. HYDREA [Suspect]
     Active Substance: HYDROXYUREA
     Indication: THROMBOCYTOPENIA
     Dosage: UNK
     Route: 065
     Dates: end: 201812

REACTIONS (1)
  - Aortic valve disease [Unknown]
